FAERS Safety Report 7586389-3 (Version None)
Quarter: 2011Q3

REPORT INFORMATION
  Report Type: 
  Country: None (occurrence: None)
  Receive Date: 20110701
  Receipt Date: 20110623
  Transmission Date: 20111222
  Serious: Yes (Death)
  Sender: FDA-Public Use
  Company Number: A0932750A

PATIENT
  Age: 29 Year
  Sex: Female

DRUGS (1)
  1. LAMICTAL [Suspect]
     Indication: EPILEPSY
     Dosage: 200MG TWICE PER DAY
     Route: 048
     Dates: start: 20020101

REACTIONS (3)
  - INTRACRANIAL ANEURYSM [None]
  - SUDDEN UNEXPLAINED DEATH IN EPILEPSY [None]
  - EPILEPSY [None]
